FAERS Safety Report 6900488-8 (Version None)
Quarter: 2010Q3

REPORT INFORMATION
  Report Type: 
  Country: None (occurrence: None)
  Receive Date: 20100803
  Receipt Date: 20100722
  Transmission Date: 20110219
  Serious: Yes (Hospitalization)
  Sender: FDA-Public Use
  Company Number: FR-PFIZER INC-2010091738

PATIENT
  Age: 84 Year
  Sex: Female

DRUGS (12)
  1. ZOLOFT [Suspect]
     Indication: DEPRESSION
     Dosage: 1 DF, 1X/DAY
     Route: 048
  2. PREVISCAN [Interacting]
     Indication: EMBOLISM ARTERIAL
     Dosage: 10 MG, 1X/DAY
     Route: 048
  3. ALDACTONE [Concomitant]
     Dosage: UNK
  4. XANAX [Concomitant]
     Dosage: UNK
  5. LORAZEPAM [Concomitant]
     Dosage: UNK
  6. BISOPROLOL FUMARATE [Concomitant]
     Dosage: UNK
  7. TIAPRIDAL [Concomitant]
     Dosage: UNK
  8. DOLIPRANE [Concomitant]
     Dosage: UNK
  9. PRIMPERAN TAB [Concomitant]
     Dosage: UNK
  10. DIFFU K [Concomitant]
     Dosage: UNK
  11. DIGOXIN [Concomitant]
     Dosage: UNK
  12. INNOHEP [Concomitant]
     Dosage: UNK

REACTIONS (6)
  - DRUG INTERACTION [None]
  - GASTROINTESTINAL HAEMORRHAGE [None]
  - HAEMATEMESIS [None]
  - MELAENA [None]
  - PEPTIC ULCER HAEMORRHAGE [None]
  - RECTAL HAEMORRHAGE [None]
